FAERS Safety Report 9655361 (Version 1)
Quarter: 2013Q4

REPORT INFORMATION
  Report Type: Spontaneous
  Country: US (occurrence: US)
  Receive Date: 20131029
  Receipt Date: 20131029
  Transmission Date: 20140711
  Serious: No
  Sender: FDA-Public Use
  Company Number: US-PURDUE-USA-2012-0088369

PATIENT
  Sex: Female

DRUGS (2)
  1. OXYCONTIN (NDA 22-272) [Suspect]
     Indication: FIBROMYALGIA
     Dosage: 60 MG, Q12H
  2. LORAZEPAM [Concomitant]
     Indication: ANXIETY
     Dosage: 1 MG, Q6H PRN
     Route: 048
     Dates: start: 20120611

REACTIONS (1)
  - Anxiety [Unknown]
